FAERS Safety Report 17196344 (Version 1)
Quarter: 2019Q4

REPORT INFORMATION
  Report Type: Spontaneous
  Country: US (occurrence: US)
  Receive Date: 20191224
  Receipt Date: 20191224
  Transmission Date: 20200122
  Serious: No
  Sender: FDA-Public Use
  Company Number: US-JNJFOC-20191214980

PATIENT

DRUGS (4)
  1. MERREM [Suspect]
     Active Substance: MEROPENEM
     Indication: ABSCESS LIMB
     Route: 065
  2. LEVAQUIN [Suspect]
     Active Substance: LEVOFLOXACIN
     Indication: OSTEOMYELITIS
  3. MERREM [Suspect]
     Active Substance: MEROPENEM
     Indication: OSTEOMYELITIS
  4. LEVAQUIN [Suspect]
     Active Substance: LEVOFLOXACIN
     Indication: ABSCESS LIMB
     Route: 065

REACTIONS (2)
  - Drug resistance [Unknown]
  - Drug ineffective [Unknown]
